FAERS Safety Report 13191311 (Version 1)
Quarter: 2017Q1

REPORT INFORMATION
  Report Type: Spontaneous
  Country: US (occurrence: US)
  Receive Date: 20170206
  Receipt Date: 20170206
  Transmission Date: 20170428
  Serious: Yes (Life-Threatening, Hospitalization, Disabling)
  Sender: FDA-Public Use
  Company Number: None

PATIENT
  Age: 7 Year
  Sex: Female
  Weight: 55.8 kg

DRUGS (2)
  1. MIRALAX [Suspect]
     Active Substance: POLYETHYLENE GLYCOL 3350
     Indication: CONSTIPATION
     Dosage: ?          OTHER FREQUENCY:17-34G 2X DAY +;?
     Route: 048
     Dates: start: 20081201, end: 20160315
  2. LEVOTHYROXINE. [Concomitant]
     Active Substance: LEVOTHYROXINE

REACTIONS (20)
  - Autism [None]
  - Dysphemia [None]
  - Abdominal pain upper [None]
  - Arthropod bite [None]
  - Flushing [None]
  - Neurological symptom [None]
  - Communication disorder [None]
  - Arthralgia [None]
  - Pupils unequal [None]
  - Cold sweat [None]
  - Abdominal distension [None]
  - Infection [None]
  - Petit mal epilepsy [None]
  - Urticaria [None]
  - Incontinence [None]
  - Dental caries [None]
  - Feeling abnormal [None]
  - Myalgia [None]
  - Anxiety [None]
  - Mydriasis [None]

NARRATIVE: CASE EVENT DATE: 20081201
